FAERS Safety Report 10383934 (Version 1)
Quarter: 2014Q1

REPORT INFORMATION
  Report Type: Spontaneous
  Country: US (occurrence: None)
  Receive Date: 20140306
  Receipt Date: 20140306
  Transmission Date: 20141002
  Serious: Yes (Hospitalization, Other)
  Sender: FDA-Public Use
  Company Number: 163-21880-13110047

PATIENT
  Age: 89 Year
  Sex: Male

DRUGS (5)
  1. REVLIMID (LENALIDOMIDE)(25 MILLIGRAM, CAPSULES) [Suspect]
     Indication: PLASMA CELL MYELOMA
     Dosage: 21 IN 21 D, PO
     Route: 048
     Dates: start: 201309
  2. FINASTERIDE(FINASTERIDE)(UNKNOWN) [Concomitant]
  3. OMEPRAZOLE(OMEPRAZOLE)(UNKNOWN) [Concomitant]
  4. DEXAMETHASONE(DEXAMETHASONE)(UNKNOWN) [Concomitant]
  5. NASAL SPRAY(OTHER THERAPEUTIC PRODUCTS)(NASAL DROPS (INCLUDING NASAL SPRAY) [Concomitant]

REACTIONS (4)
  - Thrombosis [None]
  - Fall [None]
  - Muscular weakness [None]
  - Rash [None]
